FAERS Safety Report 24115605 (Version 1)
Quarter: 2024Q3

REPORT INFORMATION
  Report Type: Spontaneous
  Country: US (occurrence: US)
  Receive Date: 20240721
  Receipt Date: 20240721
  Transmission Date: 20241016
  Serious: No
  Sender: NOVO NORDISK
  Company Number: US-NOVOPROD-1230387

PATIENT
  Sex: Male

DRUGS (1)
  1. WEGOVY [Suspect]
     Active Substance: SEMAGLUTIDE
     Indication: Weight control
     Dosage: 1.7
     Route: 058
     Dates: start: 20240301

REACTIONS (4)
  - Sensory loss [Unknown]
  - Increased appetite [Unknown]
  - Product quality issue [Unknown]
  - Drug ineffective [Unknown]
